FAERS Safety Report 14394648 (Version 1)
Quarter: 2018Q1

REPORT INFORMATION
  Report Type: Spontaneous
  Country: US (occurrence: US)
  Receive Date: 20180116
  Receipt Date: 20180116
  Transmission Date: 20180509
  Serious: Yes (Other)
  Sender: FDA-Public Use
  Company Number: US-PFIZER INC-2017258459

PATIENT
  Age: 68 Year
  Sex: Male
  Weight: 94.15 kg

DRUGS (17)
  1. AMLODIPINE BESYLATE. [Concomitant]
     Active Substance: AMLODIPINE BESYLATE
     Dosage: 5 MG, DAILY
     Route: 048
     Dates: start: 20151020
  2. ASPIRIN. [Concomitant]
     Active Substance: ASPIRIN
     Dosage: 325 MG, DAILY
     Route: 048
     Dates: start: 20161206
  3. METHOTREXATE. [Concomitant]
     Active Substance: METHOTREXATE
     Dosage: 20 MG, WEEKLY (TAKE 8 TABS)
     Route: 048
     Dates: start: 20170227
  4. MELOXICAM. [Concomitant]
     Active Substance: MELOXICAM
     Dosage: 15 MG, DAILY (TAKE 2 TABLETS)
     Route: 048
     Dates: start: 20151020
  5. SERTRALINE HCL [Concomitant]
     Active Substance: SERTRALINE HYDROCHLORIDE
     Dosage: 50 MG, DAILY
     Route: 048
     Dates: start: 20151020
  6. VITAMIN E [Concomitant]
     Active Substance: .ALPHA.-TOCOPHEROL
     Dosage: 400 IU, DAILY
     Route: 048
     Dates: start: 20151020
  7. LYRICA [Suspect]
     Active Substance: PREGABALIN
     Dosage: 75 MG, 1X/DAY (TAKE 1 CAPSULE AT BEDTIME)
     Dates: start: 20170522
  8. HUMIRA [Concomitant]
     Active Substance: ADALIMUMAB
     Dosage: 0.8 ML, EVERY 2 WEEKS
     Route: 058
     Dates: start: 20161206
  9. VITAMIN B12 [Concomitant]
     Active Substance: CYANOCOBALAMIN
     Dosage: 1000 UG, DAILY
     Route: 048
     Dates: start: 20151020
  10. LYRICA [Suspect]
     Active Substance: PREGABALIN
     Dosage: 150 MG, 2X/DAY (TAKE 1 CAPSULE (150 MG) BY MOUTH 2 TIMES PER DAY)
     Route: 048
  11. HUMIRA [Concomitant]
     Active Substance: ADALIMUMAB
     Dosage: 40 MG, EVERY OTHER WEEK
     Route: 058
  12. ASPIRIN. [Concomitant]
     Active Substance: ASPIRIN
     Dosage: 81 MG, DAILY
     Route: 048
     Dates: start: 20151020
  13. HYDROCODONE/ACETAMINOPHEN [Concomitant]
     Active Substance: ACETAMINOPHEN\HYDROCODONE
     Dosage: UNK, AS NEEDED (EVERY 6 HOURS) [HYDROCODONE BITARTRATE 10 MG]/[PARACETAMOL 325 MG]
     Route: 048
     Dates: start: 20151020
  14. LISINOPRIL. [Concomitant]
     Active Substance: LISINOPRIL
     Dosage: 10 MG, DAILY
     Route: 048
     Dates: start: 20151020
  15. METHOTREXATE. [Concomitant]
     Active Substance: METHOTREXATE
     Dosage: 20 MG, WEEKLY
     Route: 048
  16. SIMVASTATIN. [Concomitant]
     Active Substance: SIMVASTATIN
     Dosage: 20 MG, 1X/DAY (IN THE EVENING)
     Route: 048
     Dates: start: 20151020
  17. FOLIC ACID. [Concomitant]
     Active Substance: FOLIC ACID
     Dosage: 1 MG, DAILY
     Route: 048
     Dates: start: 20161206

REACTIONS (9)
  - Back pain [Unknown]
  - Transient ischaemic attack [Unknown]
  - Product use issue [Unknown]
  - Psoriasis [Recovered/Resolved]
  - Arthralgia [Unknown]
  - Pain [Unknown]
  - Psoriatic arthropathy [Unknown]
  - Osteoarthritis [Unknown]
  - Myalgia [Unknown]

NARRATIVE: CASE EVENT DATE: 20170522
